FAERS Safety Report 9478502 (Version 11)
Quarter: 2014Q4

REPORT INFORMATION
  Report Type: Spontaneous
  Country: CA (occurrence: CA)
  Receive Date: 20130827
  Receipt Date: 20141022
  Transmission Date: 20150529
  Serious: Yes (Hospitalization)
  Sender: FDA-Public Use
  Company Number: CA-ROCHE-1265363

PATIENT
  Age: 57 Year
  Sex: Female

DRUGS (22)
  1. SIMVASTATIN. [Concomitant]
     Active Substance: SIMVASTATIN
  2. SPIRIVA [Concomitant]
     Active Substance: TIOTROPIUM BROMIDE MONOHYDRATE
  3. XOLAIR [Suspect]
     Active Substance: OMALIZUMAB
     Route: 065
     Dates: start: 20130530
  4. BRICANYL [Concomitant]
     Active Substance: TERBUTALINE SULFATE
  5. VENTOLIN [Concomitant]
     Active Substance: ALBUTEROL SULFATE
  6. ZADITEN [Concomitant]
     Active Substance: KETOTIFEN FUMARATE
  7. XOLAIR [Suspect]
     Active Substance: OMALIZUMAB
     Route: 058
     Dates: start: 20130502
  8. XOLAIR [Suspect]
     Active Substance: OMALIZUMAB
     Route: 058
     Dates: start: 20131017
  9. XOLAIR [Suspect]
     Active Substance: OMALIZUMAB
     Route: 058
     Dates: start: 20140109
  10. XOLAIR [Suspect]
     Active Substance: OMALIZUMAB
     Route: 058
     Dates: start: 20130219
  11. XOLAIR [Suspect]
     Active Substance: OMALIZUMAB
     Route: 058
     Dates: start: 20131114
  12. ADVAIR HFA [Concomitant]
     Active Substance: FLUTICASONE PROPIONATE\SALMETEROL XINAFOATE
  13. XOLAIR [Suspect]
     Active Substance: OMALIZUMAB
     Indication: ASTHMA
     Route: 058
     Dates: start: 20121018
  14. SINGULAIR [Concomitant]
     Active Substance: MONTELUKAST SODIUM
  15. XOLAIR [Suspect]
     Active Substance: OMALIZUMAB
     Route: 058
     Dates: start: 20140206
  16. PREDNISONE. [Concomitant]
     Active Substance: PREDNISONE
  17. ALVESCO [Concomitant]
     Active Substance: CICLESONIDE
  18. DAXAS [Concomitant]
     Active Substance: ROFLUMILAST
  19. ZENHALE [Concomitant]
     Active Substance: FORMOTEROL FUMARATE\MOMETASONE FUROATE
  20. ATROVENT [Concomitant]
     Active Substance: IPRATROPIUM BROMIDE
  21. XOLAIR [Suspect]
     Active Substance: OMALIZUMAB
     Route: 065
     Dates: start: 20130725
  22. XOLAIR [Suspect]
     Active Substance: OMALIZUMAB
     Route: 065
     Dates: start: 20130919

REACTIONS (22)
  - Speech disorder [Unknown]
  - Malaise [Unknown]
  - Drug hypersensitivity [Unknown]
  - Nausea [Recovered/Resolved]
  - Tooth abscess [Unknown]
  - Infection [Unknown]
  - Oropharyngeal pain [Unknown]
  - Osteoarthritis [Unknown]
  - Localised infection [Unknown]
  - Obstructive airways disorder [Not Recovered/Not Resolved]
  - Headache [Recovered/Resolved]
  - Wheezing [Not Recovered/Not Resolved]
  - Breath sounds abnormal [Unknown]
  - Arthritis [Unknown]
  - Lung infection [Recovering/Resolving]
  - Viral infection [Not Recovered/Not Resolved]
  - Pharyngitis [Unknown]
  - Respiratory tract infection [Unknown]
  - Blood pressure increased [Unknown]
  - Asthma [Recovered/Resolved]
  - Hypoventilation [Unknown]
  - Dyspnoea exertional [Unknown]

NARRATIVE: CASE EVENT DATE: 20121025
